FAERS Safety Report 5278690-3 (Version None)
Quarter: 2007Q1

REPORT INFORMATION
  Report Type: 
  Country: None (occurrence: None)
  Receive Date: 20070328
  Receipt Date: 20070316
  Transmission Date: 20070707
  Serious: Yes (Other)
  Sender: FDA-Public Use
  Company Number: US-AMGEN-US215396

PATIENT
  Age: 84 Year
  Sex: Female

DRUGS (5)
  1. EPOGEN [Suspect]
     Indication: MYELODYSPLASTIC SYNDROME
     Route: 058
     Dates: start: 20061201
  2. ARANESP [Suspect]
  3. COREG [Concomitant]
  4. COZAAR [Concomitant]
  5. SYNTHROID [Concomitant]

REACTIONS (5)
  - ABDOMINAL PAIN UPPER [None]
  - ACUTE MYELOID LEUKAEMIA [None]
  - DYSPHAGIA [None]
  - OESOPHAGEAL PAIN [None]
  - PHARYNGOLARYNGEAL PAIN [None]
